FAERS Safety Report 4757889-6 (Version None)
Quarter: 2005Q3

REPORT INFORMATION
  Report Type: 
  Country: None (occurrence: None)
  Receive Date: 20050830
  Receipt Date: 20050816
  Transmission Date: 20060218
  Serious: Yes (Hospitalization, Other)
  Sender: FDA-Public Use
  Company Number: 2005BI015489

PATIENT
  Age: 69 Year
  Sex: Female
  Weight: 54.4316 kg

DRUGS (2)
  1. AVONEX [Suspect]
     Indication: MULTIPLE SCLEROSIS
     Dosage: 30 UG; QW; IM
     Route: 030
     Dates: start: 19990101
  2. AVONEX [Suspect]
     Indication: MULTIPLE SCLEROSIS
     Dosage: 30 UG; QW; IM
     Route: 030
     Dates: end: 20050701

REACTIONS (7)
  - ABASIA [None]
  - APPLICATION SITE PAIN [None]
  - FEAR [None]
  - INFLUENZA LIKE ILLNESS [None]
  - MOVEMENT DISORDER [None]
  - NON-HODGKIN'S LYMPHOMA [None]
  - PAIN [None]
